FAERS Safety Report 5766432-4 (Version None)
Quarter: 2008Q2

REPORT INFORMATION
  Report Type: 
  Country: None (occurrence: None)
  Receive Date: 20080611
  Receipt Date: 20080610
  Transmission Date: 20081010
  Serious: Yes (Death)
  Sender: FDA-Public Use
  Company Number: BR-BOEHRINGER INGELHEIM GMBH, GERMANY-2008-BP-08698BR

PATIENT

DRUGS (2)
  1. SPIRIVA [Suspect]
     Indication: CHRONIC OBSTRUCTIVE PULMONARY DISEASE
     Dates: start: 20061201
  2. SERETIDE [Concomitant]

REACTIONS (1)
  - COLON CANCER [None]
